FAERS Safety Report 16070145 (Version 1)
Quarter: 2019Q1

REPORT INFORMATION
  Report Type: Spontaneous
  Country: FR (occurrence: FR)
  Receive Date: 20190314
  Receipt Date: 20190314
  Transmission Date: 20190418
  Serious: Yes (Life-Threatening, Hospitalization, Other)
  Sender: FDA-Public Use
  Company Number: FR-ACCORD-112329

PATIENT
  Age: 14 Year
  Sex: Male

DRUGS (4)
  1. METHOTREXATE. [Suspect]
     Active Substance: METHOTREXATE
     Indication: ACUTE LYMPHOCYTIC LEUKAEMIA
     Dosage: THE PATIENT ALREADY HAD 5 INTRATHECAL, 5G/M2
     Route: 037
  2. LEVOFOLINATE [Concomitant]
     Active Substance: LEVOLEUCOVORIN CALCIUM
  3. GABAPENTIN. [Concomitant]
     Active Substance: GABAPENTIN
     Indication: CEREBRAL VENOUS THROMBOSIS
  4. LEVETIRACETAM. [Concomitant]
     Active Substance: LEVETIRACETAM
     Indication: CEREBRAL VENOUS THROMBOSIS

REACTIONS (16)
  - Diarrhoea [Recovered/Resolved]
  - Mucosal inflammation [Recovered/Resolved]
  - Pruritus [Recovered/Resolved]
  - Dermatitis exfoliative generalised [Recovered/Resolved]
  - Cheilitis [Recovered/Resolved]
  - Cholestasis [Recovered/Resolved]
  - Enteritis [Recovered/Resolved]
  - Cell death [Recovered/Resolved]
  - Norovirus test positive [Recovered/Resolved]
  - Hyperfibrinogenaemia [Recovered/Resolved]
  - Rectal ulcer [Recovered/Resolved]
  - Aplasia [Recovered/Resolved]
  - Liver abscess [Recovered/Resolved]
  - Thrombocytopenia [Recovered/Resolved]
  - Folliculitis [Recovered/Resolved]
  - Haemorrhage [Recovered/Resolved]
